FAERS Safety Report 7728841-3 (Version None)
Quarter: 2011Q3

REPORT INFORMATION
  Report Type: 
  Country: None (occurrence: None)
  Receive Date: 20110831
  Receipt Date: 20110831
  Transmission Date: 20111222
  Serious: Yes (Disabling)
  Sender: FDA-Public Use
  Company Number: None

PATIENT
  Age: 62 Year
  Sex: Female
  Weight: 79.3795 kg

DRUGS (1)
  1. ATELVIA [Suspect]
     Dosage: ONCE A WEEK
     Dates: start: 20110730

REACTIONS (5)
  - ARTHRALGIA [None]
  - PAIN IN EXTREMITY [None]
  - MUSCULOSKELETAL PAIN [None]
  - MUSCULOSKELETAL DISCOMFORT [None]
  - MOBILITY DECREASED [None]
